FAERS Safety Report 18029070 (Version 1)
Quarter: 2020Q3

REPORT INFORMATION
  Report Type: Spontaneous
  Country: JP (occurrence: JP)
  Receive Date: 20200716
  Receipt Date: 20200716
  Transmission Date: 20201103
  Serious: Yes (Hospitalization)
  Sender: FDA-Public Use
  Company Number: JP-ROCHE-2642353

PATIENT
  Age: 71 Year
  Sex: Female
  Weight: 44 kg

DRUGS (2)
  1. BESOFTEN [Concomitant]
     Active Substance: PENTOSAN POLYSULFATE SODIUM
     Dosage: DOSAGE IS UNCERTAIN.
     Route: 003
  2. XELODA [Suspect]
     Active Substance: CAPECITABINE
     Indication: BREAST CANCER
     Dosage: TWO TIMES ON AND ONE TIME OFF
     Route: 048
     Dates: start: 20191209, end: 20200518

REACTIONS (2)
  - Gait disturbance [Recovering/Resolving]
  - Neuropathy peripheral [Not Recovered/Not Resolved]

NARRATIVE: CASE EVENT DATE: 202005
